FAERS Safety Report 5603936-9 (Version None)
Quarter: 2008Q1

REPORT INFORMATION
  Report Type: 
  Country: None (occurrence: None)
  Receive Date: 20080123
  Receipt Date: 20080110
  Transmission Date: 20080703
  Serious: Yes (Hospitalization)
  Sender: FDA-Public Use
  Company Number: 002#2#2007-00379

PATIENT
  Age: 79 Year
  Sex: Female
  Weight: 44.4525 kg

DRUGS (6)
  1. NEUPRO [Suspect]
     Indication: PARKINSON'S DISEASE
     Dosage: 2MG/24H,1 IN 1 D,TRANSDERMAL; 4MG/24H,1 IN 1 D,TRANSDERMAL; 2MG/24H,1 IN 1 D,TRANSDERMAL
     Route: 062
     Dates: start: 20070101, end: 20070101
  2. NEUPRO [Suspect]
     Indication: PARKINSON'S DISEASE
     Dosage: 2MG/24H,1 IN 1 D,TRANSDERMAL; 4MG/24H,1 IN 1 D,TRANSDERMAL; 2MG/24H,1 IN 1 D,TRANSDERMAL
     Route: 062
     Dates: start: 20070901, end: 20070101
  3. NEUPRO [Suspect]
     Indication: PARKINSON'S DISEASE
     Dosage: 2MG/24H,1 IN 1 D,TRANSDERMAL; 4MG/24H,1 IN 1 D,TRANSDERMAL; 2MG/24H,1 IN 1 D,TRANSDERMAL
     Route: 062
     Dates: start: 20070101
  4. CARBIDOPA AND LEVODOPA [Concomitant]
  5. ENALAPRIL MALEATE [Concomitant]
  6. TRAZODONE HCL [Concomitant]

REACTIONS (12)
  - ANOREXIA [None]
  - DEHYDRATION [None]
  - DRUG EFFECT DECREASED [None]
  - FREEZING PHENOMENON [None]
  - HAEMOGLOBIN DECREASED [None]
  - LUNG DISORDER [None]
  - MALNUTRITION [None]
  - MOBILITY DECREASED [None]
  - MOTOR DYSFUNCTION [None]
  - NASOPHARYNGITIS [None]
  - PHARMACEUTICAL PRODUCT COMPLAINT [None]
  - TREMOR [None]
